FAERS Safety Report 19182702 (Version 2)
Quarter: 2021Q2

REPORT INFORMATION
  Report Type: Spontaneous
  Country: US (occurrence: US)
  Receive Date: 20210426
  Receipt Date: 20210523
  Transmission Date: 20210717
  Serious: Yes (Death)
  Sender: FDA-Public Use
  Company Number: US-ROCHE-2816111

PATIENT
  Sex: Male

DRUGS (1)
  1. XELODA [Suspect]
     Active Substance: CAPECITABINE
     Indication: BASAL CELL CARCINOMA
     Dosage: 14 DAYS ON 7 DAYS OFF
     Route: 048
     Dates: start: 20210308, end: 20210412

REACTIONS (1)
  - Pneumonia [Fatal]
